APPROVED DRUG PRODUCT: BUDESONIDE
Active Ingredient: BUDESONIDE
Strength: 1MG/2ML
Dosage Form/Route: SUSPENSION;INHALATION
Application: A211922 | Product #003 | TE Code: AN
Applicant: SUN PHARMACEUTICAL INDUSTRIES LTD
Approved: Apr 14, 2021 | RLD: No | RS: No | Type: RX